FAERS Safety Report 18395042 (Version 1)
Quarter: 2020Q4

REPORT INFORMATION
  Report Type: Spontaneous
  Country: US (occurrence: US)
  Receive Date: 20201016
  Receipt Date: 20201016
  Transmission Date: 20210114
  Serious: Yes (Death, Other)
  Sender: FDA-Public Use
  Company Number: US-BAUSCH-BL-2020-030245

PATIENT
  Age: 91 Year
  Sex: Male

DRUGS (6)
  1. LOSARTAN. [Interacting]
     Active Substance: LOSARTAN
     Indication: PRODUCT USED FOR UNKNOWN INDICATION
     Route: 065
  2. METOPROLOL. [Concomitant]
     Active Substance: METOPROLOL
     Indication: PRODUCT USED FOR UNKNOWN INDICATION
  3. XTANDI [Interacting]
     Active Substance: ENZALUTAMIDE
     Indication: PROSTATE CANCER
     Dosage: THERAPY START DATE 29/OCT/2019(ALSO REPORTED AS 13/NOV/2019), STOPPED ON AN UNKNOWN DATE
     Route: 048
     Dates: start: 2019
  4. LUPRON [Concomitant]
     Active Substance: LEUPROLIDE ACETATE
     Indication: PRODUCT USED FOR UNKNOWN INDICATION
  5. DILTIAZEM. [Suspect]
     Active Substance: DILTIAZEM
     Indication: PRODUCT USED FOR UNKNOWN INDICATION
     Route: 065
  6. XTANDI [Interacting]
     Active Substance: ENZALUTAMIDE
     Dosage: THERAPY START DATE 10/FEB/2020 (ALSO REPORTED AS FEB/2020)
     Route: 048
     Dates: start: 202002, end: 202009

REACTIONS (13)
  - Vision blurred [Recovered/Resolved]
  - Urine flow decreased [Unknown]
  - Blood pressure increased [Unknown]
  - Prostatic specific antigen increased [Unknown]
  - Abdominal discomfort [Unknown]
  - Therapeutic product effect decreased [Unknown]
  - Drug interaction [Unknown]
  - Balance disorder [Recovered/Resolved]
  - Pneumonia [Recovered/Resolved]
  - Pain [Unknown]
  - Death [Fatal]
  - Fatigue [Recovered/Resolved]
  - Nocturia [Unknown]

NARRATIVE: CASE EVENT DATE: 20191113
